FAERS Safety Report 4994004-8 (Version None)
Quarter: 2006Q2

REPORT INFORMATION
  Report Type: 
  Country: None (occurrence: None)
  Receive Date: 20060505
  Receipt Date: 20050926
  Transmission Date: 20061013
  Serious: Yes (Hospitalization, Other)
  Sender: FDA-Public Use
  Company Number: PHEH2005US10691

PATIENT
  Age: 43 Year
  Sex: Male

DRUGS (17)
  1. ZOMETA [Suspect]
     Dosage: 4 MG, QMO
     Route: 042
     Dates: start: 20021118, end: 20050301
  2. CHEMOTHERAPEUTICS,OTHER [Concomitant]
  3. PROTONIX [Concomitant]
     Dosage: 40 MG, QD
     Route: 048
  4. GLYBURIDE [Concomitant]
     Dosage: 2.5 MG, QD
     Route: 048
  5. DOCUSATE [Concomitant]
     Dosage: 100 MG, QD
  6. CELEBREX [Concomitant]
     Dosage: 100 MG, BID
     Route: 048
  7. LIPITOR [Concomitant]
     Dosage: 20 MG, QD
     Route: 048
  8. VICODIN [Concomitant]
     Dosage: UNK, PRN
  9. METOPROLOL SUCCINATE [Concomitant]
     Dosage: 50 MG, BID
     Route: 048
  10. ENALAPRIL MALEATE [Concomitant]
     Dosage: 10 MG, BID
     Route: 048
  11. OXYCODONE [Concomitant]
     Dosage: 10 MG, PRN
     Route: 048
  12. SENOKOT /UNK/ [Concomitant]
  13. COLACE [Concomitant]
     Dosage: 100 MG, BID
     Route: 048
  14. PHENERGAN HCL [Concomitant]
     Dosage: 25 MG, Q6H
     Route: 042
  15. NAPROSYN [Concomitant]
     Dosage: 500 MG, BID
     Route: 048
  16. HYDROCODONE [Concomitant]
  17. RADIATION THERAPY [Concomitant]

REACTIONS (21)
  - BONE DEBRIDEMENT [None]
  - FACE OEDEMA [None]
  - FACIAL PAIN [None]
  - HAEMORRHAGE [None]
  - HEADACHE [None]
  - INFLAMMATION [None]
  - JAW FRACTURE [None]
  - JAW OPERATION [None]
  - LYMPHADENOPATHY [None]
  - MUSCLE TIGHTNESS [None]
  - OSTEITIS [None]
  - OSTEOMYELITIS [None]
  - OSTEONECROSIS [None]
  - PAIN IN JAW [None]
  - PLASTIC SURGERY [None]
  - PRIMARY SEQUESTRUM [None]
  - SEQUESTRECTOMY [None]
  - STOMATITIS [None]
  - TOOTH DISORDER [None]
  - TOOTH EXTRACTION [None]
  - WOUND TREATMENT [None]
